FAERS Safety Report 14156212 (Version 11)
Quarter: 2018Q4

REPORT INFORMATION
  Report Type: Spontaneous
  Country: IT (occurrence: IT)
  Receive Date: 20171103
  Receipt Date: 20181031
  Transmission Date: 20190204
  Serious: Yes (Hospitalization, Other)
  Sender: FDA-Public Use
  Company Number: IT-AUROBINDO-AUR-APL-2017-42792

PATIENT
  Age: 45 Year
  Sex: Male

DRUGS (36)
  1. DAKLINZA [Interacting]
     Active Substance: DACLATASVIR
     Indication: HEPATITIS C
     Dosage: 30 MILLIGRAM, ONCE A DAY
     Route: 048
     Dates: start: 20150603, end: 20150722
  2. RIBAVIRIN. [Suspect]
     Active Substance: RIBAVIRIN
     Indication: HIV INFECTION
     Dosage: 1000 UNK
     Route: 065
     Dates: start: 2015
  3. TALOFEN [Concomitant]
     Active Substance: PROMAZINE HYDROCHLORIDE
     Indication: PRODUCT USED FOR UNKNOWN INDICATION
     Dosage: 4 GM/100 MLM -30ML BOTTLE SOLUTIONS
     Route: 048
  4. NEORECORMON [Concomitant]
     Active Substance: ERYTHROPOIETIN
     Indication: ANAEMIA
     Dosage: UNK
     Route: 065
  5. GAVISCON ADVANCE [Concomitant]
     Active Substance: POTASSIUM BICARBONATE\SODIUM ALGINATE
     Indication: DYSPEPSIA
     Dosage: UNK
     Route: 048
  6. ABACAVIR. [Interacting]
     Active Substance: ABACAVIR
     Indication: HIV INFECTION
     Dosage: UNK
     Route: 065
  7. RIBAVIRIN. [Suspect]
     Active Substance: RIBAVIRIN
     Dosage: 1200 MILLIGRAM
     Route: 048
     Dates: start: 20150603, end: 20150827
  8. KIVEXA [Suspect]
     Active Substance: ABACAVIR SULFATE\LAMIVUDINE
     Indication: CHRONIC HEPATITIS C
     Dosage: 30X300+600 MG TABLETS IN PVC/PVDC/AL BLISTER PACK ()
     Route: 065
  9. RITONAVIR. [Suspect]
     Active Substance: RITONAVIR
     Indication: HIV INFECTION
  10. SOVALDI [Suspect]
     Active Substance: SOFOSBUVIR
     Indication: HEPATITIS C
     Dosage: 400 MG BOTTLE (HDPE)- 28 TABLETS ()
     Route: 065
  11. NORVIR [Suspect]
     Active Substance: RITONAVIR
     Indication: HIV INFECTION
     Dosage: 100 MG, UNK
     Route: 048
     Dates: start: 20091007, end: 20150722
  12. NORVIR [Suspect]
     Active Substance: RITONAVIR
     Dosage: 100 MG BOTTLE (HDPE)-30 TABLETS
     Route: 048
  13. PERIDON                            /00498201/ [Concomitant]
     Active Substance: DOMPERIDONE
     Indication: NAUSEA
     Dosage: UNK
     Route: 048
  14. LAMIVUDINE. [Suspect]
     Active Substance: LAMIVUDINE
     Indication: CHRONIC HEPATITIS C
     Dosage: UNK
     Route: 065
  15. ATAZANAVIR SULFATE. [Suspect]
     Active Substance: ATAZANAVIR SULFATE
     Indication: HIV INFECTION
  16. ABACAVIR. [Interacting]
     Active Substance: ABACAVIR
     Indication: CHRONIC HEPATITIS C
  17. REYATAZ [Suspect]
     Active Substance: ATAZANAVIR SULFATE
     Indication: HIV INFECTION
     Dosage: 300 MG BOTTLE (HIGH DENSITY POLYETHYLENE) 30 CAPSULES
     Route: 048
     Dates: start: 20091007, end: 20150722
  18. TRUVADA [Suspect]
     Active Substance: EMTRICITABINE\TENOFOVIR DISOPROXIL FUMARATE
     Indication: HIV INFECTION
     Dosage: UNK
     Route: 048
  19. ABACAVIR W/LAMIVUDINE [Interacting]
     Active Substance: ABACAVIR\LAMIVUDINE
     Indication: CHRONIC HEPATITIS
  20. DIBASE [Concomitant]
     Active Substance: CHOLECALCIFEROL
     Indication: PRODUCT USED FOR UNKNOWN INDICATION
     Dosage: UNK GTT, UNK ()
     Route: 048
  21. LAEVOLAC EPS [Concomitant]
     Indication: PRODUCT USED FOR UNKNOWN INDICATION
     Dosage: UNK
     Route: 051
  22. DAKLINZA [Interacting]
     Active Substance: DACLATASVIR
     Indication: PRODUCT USED FOR UNKNOWN INDICATION
     Dosage: 60 MG, UNK
     Route: 065
  23. SOFOSBUVIR [Interacting]
     Active Substance: SOFOSBUVIR
     Indication: HEPATITIS C
     Dosage: UNK
     Route: 065
     Dates: start: 2015
  24. KIVEXA [Suspect]
     Active Substance: ABACAVIR SULFATE\LAMIVUDINE
     Indication: HIV INFECTION
     Dosage: 1 DF, UNK
     Route: 048
  25. RALTEGRAVIR. [Concomitant]
     Active Substance: RALTEGRAVIR
     Indication: HIV INFECTION
     Dosage: UNK
     Route: 065
  26. RITONAVIR. [Suspect]
     Active Substance: RITONAVIR
     Indication: CHRONIC HEPATITIS C
     Dosage: UNK
     Route: 065
  27. EMTRICITABINE / TENOFOVIR DISOPROXIL FUMARATE [Interacting]
     Active Substance: EMTRICITABINE\TENOFOVIR DISOPROXIL FUMARATE
     Indication: CHRONIC HEPATITIS C
  28. SOFOSBUVIR [Interacting]
     Active Substance: SOFOSBUVIR
     Indication: CHRONIC HEPATITIS C
  29. ABACAVIR W/LAMIVUDINE [Interacting]
     Active Substance: ABACAVIR\LAMIVUDINE
     Indication: HIV INFECTION
     Dosage: UNK
     Route: 065
  30. TALOFEN [Concomitant]
     Active Substance: PROMAZINE HYDROCHLORIDE
     Dosage: 1 DF, UNK
     Route: 048
  31. EMTRICITABINE / TENOFOVIR DISOPROXIL FUMARATE [Interacting]
     Active Substance: EMTRICITABINE\TENOFOVIR DISOPROXIL FUMARATE
     Indication: HIV INFECTION
     Dosage: UNK
     Route: 065
  32. RIBAVIRIN. [Suspect]
     Active Substance: RIBAVIRIN
     Dosage: 600 MILLIGRAM, ONCE A DAY
     Route: 065
  33. SOVALDI [Suspect]
     Active Substance: SOFOSBUVIR
     Indication: HIV INFECTION
     Dosage: 60 MG, UNK
     Route: 065
  34. METADONE CLORIDRATO [Concomitant]
     Active Substance: METHADONE HYDROCHLORIDE
     Indication: DRUG DEPENDENCE
     Dosage: UNK
     Route: 048
  35. LAMIVUDINE. [Suspect]
     Active Substance: LAMIVUDINE
     Indication: HIV INFECTION
  36. ATAZANAVIR SULFATE. [Suspect]
     Active Substance: ATAZANAVIR SULFATE
     Indication: CHRONIC HEPATITIS C
     Dosage: UNK
     Route: 065

REACTIONS (13)
  - Biliary colic [Unknown]
  - Jaundice [Unknown]
  - Anaemia [Recovered/Resolved]
  - Tubulointerstitial nephritis [Recovering/Resolving]
  - Nephrolithiasis [Recovered/Resolved]
  - Cholelithiasis [Recovered/Resolved]
  - Hyperbilirubinaemia [Recovered/Resolved]
  - Haemolysis [Recovering/Resolving]
  - Renal disorder [Recovered/Resolved]
  - Renal tubular disorder [Unknown]
  - Bile duct stone [Recovered/Resolved]
  - Drug interaction [Recovered/Resolved]
  - Haemoglobin decreased [Not Recovered/Not Resolved]

NARRATIVE: CASE EVENT DATE: 2014
